FAERS Safety Report 9346271 (Version 2)
Quarter: 2013Q3

REPORT INFORMATION
  Report Type: Report from Study
  Country: CN (occurrence: CN)
  Receive Date: 20130613
  Receipt Date: 20130902
  Transmission Date: 20140515
  Serious: Yes (Other)
  Sender: FDA-Public Use
  Company Number: CN-ROCHE-1235823

PATIENT
  Sex: 0

DRUGS (2)
  1. CAPECITABINE [Suspect]
     Indication: NASOPHARYNGEAL CANCER
     Route: 048
  2. NEDAPLATIN [Suspect]
     Indication: NASOPHARYNGEAL CANCER
     Route: 042

REACTIONS (8)
  - Neutropenia [Unknown]
  - Leukopenia [Unknown]
  - Anaemia [Unknown]
  - Palmar-plantar erythrodysaesthesia syndrome [Unknown]
  - Diarrhoea [Unknown]
  - Stomatitis [Unknown]
  - Pigmentation disorder [Unknown]
  - Febrile neutropenia [Unknown]
